FAERS Safety Report 7328357 (Version 4)
Quarter: 2013Q4

REPORT INFORMATION
  Report Type: Spontaneous
  Country: US (occurrence: US)
  Receive Date: 20100323
  Receipt Date: 20131230
  Transmission Date: 20140711
  Serious: Yes (Hospitalization, Other)
  Sender: FDA-Public Use
  Company Number: US-BAYER-201017060NA

PATIENT
  Age: 25 Year
  Sex: Female
  Weight: 102.27 kg

DRUGS (17)
  1. YAZ [Suspect]
     Indication: HORMONE LEVEL ABNORMAL
     Route: 048
     Dates: start: 20070626, end: 2010
  2. YAZ [Suspect]
     Indication: CONTRACEPTION
  3. YASMIN [Suspect]
     Indication: HORMONE LEVEL ABNORMAL
     Route: 048
     Dates: start: 20070626, end: 20080605
  4. YASMIN [Suspect]
     Indication: CONTRACEPTION
  5. OCELLA [Suspect]
     Indication: HORMONE LEVEL ABNORMAL
     Route: 048
     Dates: start: 20080709, end: 20090727
  6. OCELLA [Suspect]
     Indication: CONTRACEPTION
  7. PREVIFEM-28 [Concomitant]
     Dates: start: 20070608, end: 20070619
  8. METFORMIN [Concomitant]
     Indication: INSULIN RESISTANCE
     Route: 048
     Dates: start: 200706
  9. ALBUTEROL [Concomitant]
     Indication: ASTHMA
  10. TYLENOL [PARACETAMOL] [Concomitant]
  11. IBUPROFEN [Concomitant]
  12. MOTRIN [Concomitant]
  13. SPIRONOLACTONE [Concomitant]
     Indication: HIRSUTISM
     Route: 048
     Dates: start: 2007, end: 2008
  14. ASPIRIN [Concomitant]
  15. PERCOCET [Concomitant]
     Indication: PAIN
     Dosage: Q 4HOURS
  16. AZITHROMYCIN [Concomitant]
  17. OXYCODONE/APAP [Concomitant]
     Dosage: 7.5/500 MG

REACTIONS (9)
  - Cholelithiasis [Recovered/Resolved]
  - Cholecystitis chronic [None]
  - Gallbladder non-functioning [Unknown]
  - Abdominal pain [Not Recovered/Not Resolved]
  - Biliary dyskinesia [Unknown]
  - Abdominal pain upper [Recovered/Resolved]
  - Abdominal pain upper [Recovered/Resolved]
  - Diarrhoea [Recovered/Resolved]
  - Abdominal pain [Recovered/Resolved]
